FAERS Safety Report 5283618-6 (Version None)
Quarter: 2007Q1

REPORT INFORMATION
  Report Type: 
  Country: None (occurrence: None)
  Receive Date: 20061226
  Receipt Date: 20061010
  Transmission Date: 20070707
  Serious: Yes (Hospitalization)
  Sender: FDA-Public Use
  Company Number: 2006S1000244

PATIENT
  Sex: Male

DRUGS (1)
  1. SORIATANE [Suspect]
     Indication: NEPHROGENIC FIBROSING DERMOPATHY
     Dosage: 25 MG;QD;PO
     Route: 048
     Dates: start: 20051101, end: 20061001

REACTIONS (1)
  - HYPERCALCAEMIA [None]
